FAERS Safety Report 24303548 (Version 8)
Quarter: 2025Q3

REPORT INFORMATION
  Report Type: Spontaneous
  Country: EU (occurrence: EU)
  Receive Date: 20240910
  Receipt Date: 20250908
  Transmission Date: 20251020
  Serious: Yes (Life-Threatening, Hospitalization, Other)
  Sender: MYLAN
  Company Number: EU-SUN PHARMACEUTICAL INDUSTRIES LTD-2024RR-464739

PATIENT
  Age: 60 Year
  Sex: Male

DRUGS (16)
  1. PREGABALIN [Suspect]
     Active Substance: PREGABALIN
     Indication: Antidepressant therapy
  2. PREGABALIN [Suspect]
     Active Substance: PREGABALIN
     Route: 048
  3. PREGABALIN [Suspect]
     Active Substance: PREGABALIN
     Route: 048
  4. PREGABALIN [Suspect]
     Active Substance: PREGABALIN
  5. ETHYLENE GLYCOL [Suspect]
     Active Substance: ETHYLENE GLYCOL
     Indication: Product used for unknown indication
  6. ETHYLENE GLYCOL [Suspect]
     Active Substance: ETHYLENE GLYCOL
     Route: 065
  7. ETHYLENE GLYCOL [Suspect]
     Active Substance: ETHYLENE GLYCOL
     Route: 065
  8. ETHYLENE GLYCOL [Suspect]
     Active Substance: ETHYLENE GLYCOL
  9. AMITRIPTYLINE [Suspect]
     Active Substance: AMITRIPTYLINE
     Indication: Antidepressant therapy
  10. AMITRIPTYLINE [Suspect]
     Active Substance: AMITRIPTYLINE
     Route: 048
  11. AMITRIPTYLINE [Suspect]
     Active Substance: AMITRIPTYLINE
     Route: 048
  12. AMITRIPTYLINE [Suspect]
     Active Substance: AMITRIPTYLINE
  13. BUPRENORPHINE [Suspect]
     Active Substance: BUPRENORPHINE
     Indication: Analgesic therapy
     Dosage: 35 MICROGRAM, QH
  14. BUPRENORPHINE [Suspect]
     Active Substance: BUPRENORPHINE
     Dosage: 35 MICROGRAM, QH
     Route: 062
  15. BUPRENORPHINE [Suspect]
     Active Substance: BUPRENORPHINE
     Dosage: 35 MICROGRAM, QH
     Route: 062
  16. BUPRENORPHINE [Suspect]
     Active Substance: BUPRENORPHINE
     Dosage: 35 MICROGRAM, QH

REACTIONS (11)
  - Cardiopulmonary failure [Recovered/Resolved]
  - Circulatory collapse [Recovered/Resolved]
  - Loss of consciousness [Recovered/Resolved]
  - Pneumonia [Recovered/Resolved]
  - Pneumonia aspiration [Recovered/Resolved]
  - Respiratory failure [Recovered/Resolved]
  - Suicide attempt [Recovered/Resolved]
  - Intentional overdose [Recovered/Resolved]
  - Drug abuse [Unknown]
  - Cardiac failure [Recovered/Resolved]
  - Toxicity to various agents [Unknown]
